FAERS Safety Report 19997536 (Version 1)
Quarter: 2021Q4

REPORT INFORMATION
  Report Type: Spontaneous
  Country: US (occurrence: US)
  Receive Date: 20211026
  Receipt Date: 20211026
  Transmission Date: 20220303
  Serious: Yes (Disabling)
  Sender: FDA-Public Use
  Company Number: US-MYLANLABS-2021M1076556

PATIENT
  Sex: Female

DRUGS (1)
  1. LEVONORGESTREL [Suspect]
     Active Substance: LEVONORGESTREL
     Indication: Intrauterine contraception
     Dosage: 20 MICROGRAM, QD
     Route: 015

REACTIONS (3)
  - Chlamydial infection [Recovered/Resolved]
  - Infertility female [Recovered/Resolved]
  - Uterine adhesions [Recovered/Resolved]
